FAERS Safety Report 21005442 (Version 2)
Quarter: 2022Q3

REPORT INFORMATION
  Report Type: Spontaneous
  Country: TR (occurrence: TR)
  Receive Date: 20220624
  Receipt Date: 20220907
  Transmission Date: 20221027
  Serious: Yes (Hospitalization, Other)
  Sender: FDA-Public Use
  Company Number: TR-NOVARTISPH-NVSC2022TR145227

PATIENT
  Age: 34 Year
  Sex: Female

DRUGS (1)
  1. SECUKINUMAB [Suspect]
     Active Substance: SECUKINUMAB
     Indication: Ankylosing spondylitis
     Dosage: 150 MG, QW (AT WEEKS 0, 1, 2, 3 AND 4) FOLLOWED BY MONTHLY MAINTENANCE DOSING
     Route: 058
     Dates: start: 201905

REACTIONS (1)
  - Behcet^s syndrome [Recovering/Resolving]
